FAERS Safety Report 4589117-9 (Version None)
Quarter: 2005Q1

REPORT INFORMATION
  Report Type: 
  Country: None (occurrence: None)
  Receive Date: 20050125
  Receipt Date: 20041026
  Transmission Date: 20050727
  Serious: No
  Sender: FDA-Public Use
  Company Number: USA040360727

PATIENT
  Age: 79 Year
  Sex: Female
  Weight: 52 kg

DRUGS (5)
  1. FORTEO [Suspect]
     Indication: OSTEOPOROSIS
     Dosage: 20 UG/1 DAY
     Dates: start: 20040224
  2. NORVASC [Concomitant]
  3. PRAVACHOL [Concomitant]
  4. ASPIRIN [Concomitant]
  5. MONOPRIL [Concomitant]

REACTIONS (11)
  - APHAGIA [None]
  - DIARRHOEA [None]
  - DIZZINESS [None]
  - FEELING ABNORMAL [None]
  - INFLUENZA [None]
  - INJECTION SITE HAEMORRHAGE [None]
  - MUSCLE SPASMS [None]
  - NAUSEA [None]
  - NERVOUSNESS [None]
  - SCRATCH [None]
  - VOMITING [None]
